FAERS Safety Report 16713562 (Version 1)
Quarter: 2019Q3

REPORT INFORMATION
  Report Type: Spontaneous
  Country: US (occurrence: US)
  Receive Date: 20190819
  Receipt Date: 20190819
  Transmission Date: 20191004
  Serious: No
  Sender: FDA-Public Use
  Company Number: US-ACCORD-138638

PATIENT
  Age: 78 Year
  Sex: Male

DRUGS (3)
  1. INDAPAMIDE. [Concomitant]
     Active Substance: INDAPAMIDE
  2. OLMESARTAN-MEDOXOMIL_ACD_US [Suspect]
     Active Substance: OLMESARTAN MEDOXOMIL
     Indication: BLOOD PRESSURE MEASUREMENT
     Route: 048
     Dates: start: 20190505, end: 20190707
  3. CARVEDILOL/CARVEDILOL HYDROCHLODRIDE [Concomitant]

REACTIONS (1)
  - Blood urine present [Recovered/Resolved]

NARRATIVE: CASE EVENT DATE: 20190707
